FAERS Safety Report 10159585 (Version 1)
Quarter: 2014Q2

REPORT INFORMATION
  Report Type: Spontaneous
  Country: US (occurrence: None)
  Receive Date: 20140507
  Receipt Date: 20140507
  Transmission Date: 20141212
  Serious: Yes (Disabling)
  Sender: FDA-Public Use
  Company Number: None

PATIENT
  Age: 58 Year
  Sex: Female
  Weight: 90.72 kg

DRUGS (1)
  1. SEROQUEL [Suspect]
     Indication: BIPOLAR I DISORDER
     Dosage: 1/2 MORNING/1 AT BEDTIME?TWICE DAILY?TAKEN BY MOUTH?UNITIL I STOPPED TAKING IT
     Route: 048

REACTIONS (15)
  - Malaise [None]
  - Middle insomnia [None]
  - Lung disorder [None]
  - Chest discomfort [None]
  - Wheezing [None]
  - Palpitations [None]
  - Wrong technique in drug usage process [None]
  - Heart rate increased [None]
  - Blood pressure increased [None]
  - Hallucination, visual [None]
  - Vertigo [None]
  - Anxiety [None]
  - Paranoia [None]
  - Suspiciousness [None]
  - Insomnia [None]
